FAERS Safety Report 7124791-4 (Version None)
Quarter: 2010Q4

REPORT INFORMATION
  Report Type: 
  Country: None (occurrence: None)
  Receive Date: 20101123
  Receipt Date: 20101123
  Transmission Date: 20110411
  Serious: Yes (Hospitalization)
  Sender: FDA-Public Use
  Company Number: None

PATIENT
  Age: 29 Year
  Sex: Female

DRUGS (6)
  1. ARIPIPRAZOLE [Suspect]
     Dosage: 10 MG DAILY PO
     Route: 048
  2. VERAPAMIL [Concomitant]
  3. MILTIVIT [Concomitant]
  4. VALTREX [Concomitant]
  5. LUVOX [Concomitant]
  6. TRAZODONE HCL [Concomitant]

REACTIONS (1)
  - CHEST PAIN [None]
